FAERS Safety Report 7620244-5 (Version None)
Quarter: 2011Q3

REPORT INFORMATION
  Report Type: 
  Country: None (occurrence: None)
  Receive Date: 20110719
  Receipt Date: 20110707
  Transmission Date: 20111222
  Serious: Yes (Hospitalization)
  Sender: FDA-Public Use
  Company Number: PHHY2010MX62146

PATIENT
  Sex: Female

DRUGS (2)
  1. BI-EUGLUCON [Concomitant]
     Indication: DIABETES MELLITUS
     Dosage: 1 DF, 5 MG GLIB AND 500 MG METF
     Route: 048
     Dates: start: 19800101
  2. EXFORGE [Suspect]
     Indication: HYPERTENSION
     Dosage: 1 DF, 160 MG VALS AND 5 MG AMLO
     Route: 048
     Dates: start: 20100506

REACTIONS (3)
  - HYPERTENSION [None]
  - ASPHYXIA [None]
  - MUSCULOSKELETAL STIFFNESS [None]
